FAERS Safety Report 20221224 (Version 1)
Quarter: 2021Q4

REPORT INFORMATION
  Report Type: Spontaneous
  Country: SE (occurrence: SE)
  Receive Date: 20211223
  Receipt Date: 20211223
  Transmission Date: 20220303
  Serious: Yes (Hospitalization)
  Sender: FDA-Public Use
  Company Number: None

PATIENT
  Age: 60 Year
  Sex: Female
  Weight: 63 kg

DRUGS (16)
  1. SIMVASTATIN [Suspect]
     Active Substance: SIMVASTATIN
     Indication: Low density lipoprotein increased
     Dosage: 20 MILLIGRAM DAILY; 20MG 1 FOR THE NIGHT.
     Route: 048
     Dates: start: 20210510
  2. METFORMIN HYDROCHLORIDE [Concomitant]
     Active Substance: METFORMIN HYDROCHLORIDE
     Dosage: 1 DOSAGE FORMS DAILY; 0+0+1+0, TABLETS AND OTHER
     Dates: start: 20180713
  3. SIMVASTATIN [Concomitant]
     Active Substance: SIMVASTATIN
     Dosage: 1TNTV, SIMVASTATIN KRKA, TABLETS AND OTHER
     Dates: start: 20210510, end: 20211108
  4. PROMETHAZINE HYDROCHLORIDE\THIOUREA [Concomitant]
     Active Substance: PROMETHAZINE HYDROCHLORIDE\THIOUREA
     Dosage: 1-2TNVBTV, TABLETS AND OTHER
     Dates: start: 20180116
  5. LEVOTHYROXINE SODIUM [Concomitant]
     Active Substance: LEVOTHYROXINE SODIUM
     Dosage: EO, TABLETS AND OTHER
     Dates: start: 20181205, end: 20211103
  6. LEVOTHYROXINE SODIUM [Concomitant]
     Active Substance: LEVOTHYROXINE SODIUM
     Dates: start: 20181205, end: 20211102
  7. ATARAX [Concomitant]
     Active Substance: HYDROXYZINE HYDROCHLORIDE
     Dosage: 1-2VB MAX5/D, TABLETS AND OTHER
     Dates: start: 20201023, end: 20211101
  8. ZOLOFT [Concomitant]
     Active Substance: SERTRALINE HYDROCHLORIDE
     Dosage: 1X1, TABLETS AND OTHER
     Dates: start: 20191025
  9. ZOLOFT [Concomitant]
     Active Substance: SERTRALINE HYDROCHLORIDE
     Dosage: 1X1TV
     Dates: start: 20211029
  10. artelac [Concomitant]
     Dosage: 1VBTV, TABLETS AND OTHER
     Dates: start: 20210414
  11. OMEPRAZOLE [Concomitant]
     Active Substance: OMEPRAZOLE
     Dosage: 1X1TV, TABLETS AND OTHER, OMEPRAZOLE PENSA
     Dates: start: 20171227, end: 20211101
  12. OVIXAN [Concomitant]
     Dosage: EO, TABLETS AND OTHER
     Dates: start: 20181106, end: 20211101
  13. AMLODIPINE BESYLATE [Concomitant]
     Active Substance: AMLODIPINE BESYLATE
     Dosage: 1+0+0+0TV, TABLETS AND OTHER, AMLODIPINE ACCORD
     Dates: start: 20210406
  14. HYDROCHLOROTHIAZIDE\LOSARTAN [Concomitant]
     Active Substance: HYDROCHLOROTHIAZIDE\LOSARTAN
     Dosage: 1X1TV, TABLETS AND OTHER, LOSARTAN/HYDROCHLOROTHIAZIDE KRKA
     Dates: start: 20181226
  15. METOPROLOL [Concomitant]
     Active Substance: METOPROLOL
     Dosage: 1X1TV, TABLETS AND OTHER, METOPROLOL ORION
     Dates: start: 20200313
  16. VAGIFEM [Concomitant]
     Active Substance: ESTRADIOL
     Dosage: IRREGULAR, TABLETS AND OTHER
     Dates: start: 20210420, end: 20211101

REACTIONS (1)
  - Pancreatitis acute [Recovering/Resolving]

NARRATIVE: CASE EVENT DATE: 20211030
